FAERS Safety Report 7505622-7 (Version None)
Quarter: 2011Q2

REPORT INFORMATION
  Report Type: 
  Country: None (occurrence: None)
  Receive Date: 20110526
  Receipt Date: 20110523
  Transmission Date: 20111010
  Serious: Yes (Other)
  Sender: FDA-Public Use
  Company Number: US-PFIZER INC-2011110967

PATIENT
  Sex: Female
  Weight: 81.633 kg

DRUGS (4)
  1. LOSARTAN [Concomitant]
     Indication: HYPERTENSION
     Dosage: UNK
  2. HYDROCHLOROTHIAZIDE [Concomitant]
     Indication: HYPERTENSION
     Dosage: UNK
  3. LYRICA [Suspect]
     Indication: FIBROMYALGIA
     Dosage: UNK, 3X/DAY
     Route: 048
     Dates: end: 20110301
  4. LITHIUM [Concomitant]
     Indication: BIPOLAR DISORDER
     Dosage: UNK

REACTIONS (11)
  - LYMPHOEDEMA [None]
  - ABDOMINAL PAIN UPPER [None]
  - EYE DISORDER [None]
  - DECREASED APPETITE [None]
  - SKIN DISCOLOURATION [None]
  - MALAISE [None]
  - INCONTINENCE [None]
  - PRURITUS [None]
  - IMMOBILE [None]
  - PYREXIA [None]
  - DIARRHOEA [None]
